FAERS Safety Report 8969786 (Version 1)
Quarter: 2012Q4

REPORT INFORMATION
  Report Type: 
  Country: PL (occurrence: PL)
  Receive Date: 20121218
  Receipt Date: 20121218
  Transmission Date: 20130627
  Serious: Yes (Other)
  Sender: FDA-Public Use
  Company Number: PHHY2012PL114974

PATIENT
  Age: 21 Year
  Sex: Male

DRUGS (10)
  1. SIMULECT [Suspect]
     Indication: RENAL TRANSPLANT
     Dosage: UNK UKN, UNK
  2. MYFORTIC [Suspect]
     Indication: RENAL TRANSPLANT
     Dosage: UNK UKN, UNK
  3. MYFORTIC [Suspect]
     Dosage: 360 mg, BID
     Dates: start: 20121015
  4. CYCLAID [Suspect]
     Indication: RENAL TRANSPLANT
     Dosage: UNK UKN, UNK
  5. CYCLAID [Suspect]
     Dosage: 175 mg, BID
  6. CELLCEPT [Concomitant]
     Indication: RENAL TRANSPLANT
     Dosage: UNK UKN, UNK
  7. METYPRED [Concomitant]
     Indication: RENAL TRANSPLANT
     Dosage: UNK UKN, UNK
  8. METYPRED [Concomitant]
     Dosage: 20 mg, QD
  9. PREDNISONE [Concomitant]
     Indication: RENAL TRANSPLANT
  10. TACRO [Concomitant]
     Indication: RENAL TRANSPLANT

REACTIONS (7)
  - Focal segmental glomerulosclerosis [Unknown]
  - Proteinuria [Recovered/Resolved]
  - Glomerulonephritis minimal lesion [Unknown]
  - Pancytopenia [Unknown]
  - Urinary tract infection bacterial [Unknown]
  - Klebsiella infection [Unknown]
  - Diarrhoea [Unknown]
